FAERS Safety Report 6216998-5 (Version None)
Quarter: 2009Q2

REPORT INFORMATION
  Report Type: 
  Country: None (occurrence: None)
  Receive Date: 20090604
  Receipt Date: 20090529
  Transmission Date: 20091009
  Serious: Yes (Death, Other)
  Sender: FDA-Public Use
  Company Number: 2009US001975

PATIENT
  Age: 4 Year
  Sex: Male

DRUGS (1)
  1. AMBISOME [Suspect]
     Indication: CANDIDIASIS
     Dosage: 5 MG/KG, UID/QD, IV NOS
     Route: 042

REACTIONS (3)
  - ARRHYTHMIA [None]
  - CARDIAC ARREST [None]
  - HYPERKALAEMIA [None]
